FAERS Safety Report 6329678-2 (Version None)
Quarter: 2009Q3

REPORT INFORMATION
  Report Type: 
  Country: None (occurrence: None)
  Receive Date: 20090824
  Receipt Date: 20090824
  Transmission Date: 20100115
  Serious: No
  Sender: FDA-Public Use
  Company Number: None

PATIENT

DRUGS (1)
  1. BENAZEPRIL HYDROCHLORIDE [Suspect]
     Dosage: 20 MILLIGRAMS

REACTIONS (2)
  - HEADACHE [None]
  - VISION BLURRED [None]
